FAERS Safety Report 5278358-3 (Version None)
Quarter: 2007Q1

REPORT INFORMATION
  Report Type: 
  Country: None (occurrence: None)
  Receive Date: 20061213
  Receipt Date: 20030826
  Transmission Date: 20070707
  Serious: No
  Sender: FDA-Public Use
  Company Number: 2003UW08177

PATIENT
  Age: 35 Year
  Sex: Female

DRUGS (5)
  1. SEROQUEL [Suspect]
     Indication: BIPOLAR DISORDER
     Dosage: 25 MG ONCE PO
     Route: 048
  2. EFFEXOR XR [Concomitant]
  3. TRILEPTAL [Concomitant]
  4. LAMICTAL [Concomitant]
  5. ATIVAN [Concomitant]

REACTIONS (1)
  - EXTRAPYRAMIDAL DISORDER [None]
